FAERS Safety Report 5325806-6 (Version None)
Quarter: 2007Q2

REPORT INFORMATION
  Report Type: 
  Country: None (occurrence: None)
  Receive Date: 20070510
  Receipt Date: 20070426
  Transmission Date: 20071010
  Serious: Yes (Hospitalization)
  Sender: FDA-Public Use
  Company Number: 2006EU002955

PATIENT
  Age: 53 Year
  Sex: Female

DRUGS (10)
  1. TACROLIMUS [Suspect]
     Indication: LIVER TRANSPLANT
     Dosage: SEE IMAGE
     Route: 048
     Dates: start: 20050520, end: 20050520
  2. TACROLIMUS [Suspect]
     Indication: LIVER TRANSPLANT
     Dosage: SEE IMAGE
     Route: 048
     Dates: start: 20050521, end: 20060523
  3. METHYLPREDNISOLONE [Suspect]
     Indication: LIVER TRANSPLANT
     Dosage: 30 MG, UID/QD
     Dates: start: 20050520, end: 20050621
  4. PREDNISONE TAB [Suspect]
     Indication: LIVER TRANSPLANT
     Dosage: 2 MG, UID/QD
     Dates: start: 20050528, end: 20060523
  5. PIPERILLINE (PIPERACILLIN SODIUM) [Concomitant]
  6. HEPARIN [Concomitant]
  7. FRAXIPARINE (NADROPARIN CALCIUM) [Concomitant]
  8. ASPEGIC 1000 [Concomitant]
  9. OMEPRAZOLE [Concomitant]
  10. PANTOPRAZOLE SODIUM [Concomitant]

REACTIONS (11)
  - CONJUNCTIVAL HAEMORRHAGE [None]
  - ESCHERICHIA URINARY TRACT INFECTION [None]
  - FACE OEDEMA [None]
  - GENERAL PHYSICAL HEALTH DETERIORATION [None]
  - HEPATITIS [None]
  - HYPOALBUMINAEMIA [None]
  - HYPONATRAEMIA [None]
  - NO ADVERSE DRUG EFFECT [None]
  - SKIN HAEMORRHAGE [None]
  - URINARY TRACT INFECTION BACTERIAL [None]
  - VOMITING [None]
